FAERS Safety Report 4675834-9 (Version None)
Quarter: 2005Q2

REPORT INFORMATION
  Report Type: 
  Country: None (occurrence: None)
  Receive Date: 20050527
  Receipt Date: 20031008
  Transmission Date: 20051028
  Serious: Yes (Death)
  Sender: FDA-Public Use
  Company Number: PH-2004-BP-01827RP

PATIENT
  Age: 72 Year
  Sex: Female
  Weight: 50 kg

DRUGS (1)
  1. SIFROL TABLETS [Suspect]
     Indication: PARKINSON'S DISEASE
     Route: 048

REACTIONS (5)
  - DEATH [None]
  - DEPRESSED LEVEL OF CONSCIOUSNESS [None]
  - DYSPHAGIA [None]
  - PNEUMONIA [None]
  - PNEUMONIA ASPIRATION [None]
